FAERS Safety Report 8913898 (Version 1)
Quarter: 2012Q4

REPORT INFORMATION
  Report Type: Spontaneous
  Country: US (occurrence: None)
  Receive Date: 20121115
  Receipt Date: 20121115
  Transmission Date: 20130627
  Serious: Yes (Other)
  Sender: FDA-Public Use
  Company Number: None

PATIENT
  Sex: Female
  Weight: 83.92 kg

DRUGS (1)
  1. SUBOXONE FILM [Suspect]
     Indication: CHRONIC PAIN
     Dosage: 8-2 mg sl
     Route: 048
     Dates: start: 20121029

REACTIONS (1)
  - Drug effect decreased [None]
